FAERS Safety Report 9006658 (Version 1)
Quarter: 2013Q1

REPORT INFORMATION
  Report Type: Spontaneous
  Country: US (occurrence: US)
  Receive Date: 20130110
  Receipt Date: 20130110
  Transmission Date: 20140127
  Serious: Yes (Hospitalization)
  Sender: FDA-Public Use
  Company Number: US-BAXTER-2013BAX000280

PATIENT
  Age: 28 Year
  Sex: Male

DRUGS (1)
  1. DIANEAL LOW CALCIUM [Suspect]
     Indication: PERITONEAL DIALYSIS
     Dosage: UNKNOWN
     Route: 033

REACTIONS (2)
  - Peritoneal dialysis complication [Recovering/Resolving]
  - Tachycardia [Recovering/Resolving]
